FAERS Safety Report 8289599-5 (Version None)
Quarter: 2012Q2

REPORT INFORMATION
  Report Type: 
  Country: None (occurrence: None)
  Receive Date: 20120417
  Receipt Date: 20120406
  Transmission Date: 20120825
  Serious: Yes (Hospitalization)
  Sender: FDA-Public Use
  Company Number: KR-SANOFI-AVENTIS-2012SA024725

PATIENT
  Age: 53 Year
  Sex: Female

DRUGS (1)
  1. LEFLUNOMIDE [Suspect]
     Indication: RHEUMATOID ARTHRITIS
     Route: 065
     Dates: start: 20050501, end: 20090401

REACTIONS (8)
  - HUMAN HERPES VIRUS 8 TEST POSITIVE [None]
  - DERMATITIS BULLOUS [None]
  - TENDERNESS [None]
  - NODULE [None]
  - SKIN HYPERPIGMENTATION [None]
  - SCAB [None]
  - KAPOSI'S SARCOMA [None]
  - LYMPHANGIOMA [None]
